FAERS Safety Report 8950086 (Version 1)
Quarter: 2012Q4

REPORT INFORMATION
  Report Type: 
  Country: US (occurrence: US)
  Receive Date: 20121205
  Receipt Date: 20121205
  Transmission Date: 20130627
  Serious: No
  Sender: FDA-Public Use
  Company Number: US-ASTELLAS-2012US005580

PATIENT
  Sex: Male

DRUGS (4)
  1. TARCEVA [Suspect]
     Indication: NON-SMALL CELL LUNG CANCER
     Dosage: UNK mg, UID/QD
     Route: 048
     Dates: start: 201108
  2. TARCEVA [Suspect]
     Dosage: 100 mg, UID/QD
     Route: 048
  3. TARCEVA [Suspect]
     Dosage: 100 mg, 5 days per week
     Route: 048
     Dates: start: 201205, end: 20120618
  4. TARCEVA [Suspect]
     Dosage: 50 mg, Unknown/D
     Dates: start: 20120701

REACTIONS (6)
  - Wrong technique in drug usage process [Unknown]
  - Rash [Recovered/Resolved]
  - Diarrhoea [Recovered/Resolved]
  - Nausea [Recovered/Resolved]
  - Rash [Unknown]
  - Gastrointestinal disorder [Recovered/Resolved]
